FAERS Safety Report 5777850-2 (Version None)
Quarter: 2008Q2

REPORT INFORMATION
  Report Type: 
  Country: None (occurrence: None)
  Receive Date: 20080601
  Receipt Date: 20080104
  Transmission Date: 20081010
  Serious: No
  Sender: FDA-Public Use
  Company Number: US20080100792

PATIENT
  Age: 63 Year
  Sex: Female
  Weight: 108 kg

DRUGS (9)
  1. BYETTA [Suspect]
     Indication: TYPE 2 DIABETES MELLITUS
     Dosage: 5 UG, 2/D, SUBCUTANEOUS : 10 UG, 2/D, SUBCUTANEOUS : 10 UG, DAILY (1/D), SUBCUTANEOUS
     Route: 058
     Dates: start: 20070205, end: 20070301
  2. BYETTA [Suspect]
     Indication: TYPE 2 DIABETES MELLITUS
     Dosage: 5 UG, 2/D, SUBCUTANEOUS : 10 UG, 2/D, SUBCUTANEOUS : 10 UG, DAILY (1/D), SUBCUTANEOUS
     Route: 058
     Dates: start: 20070301, end: 20071216
  3. BYETTA [Suspect]
     Indication: TYPE 2 DIABETES MELLITUS
     Dosage: 5 UG, 2/D, SUBCUTANEOUS : 10 UG, 2/D, SUBCUTANEOUS : 10 UG, DAILY (1/D), SUBCUTANEOUS
     Route: 058
     Dates: start: 20071217
  4. EXENATIDE PEN, DISPOSABLE DEVICE (EXENATIDE PEN) PEN,DISPOSABLE [Concomitant]
  5. ACTOS [Concomitant]
  6. THYROID TAB [Concomitant]
  7. NOVOLOG [Concomitant]
  8. CLINDAMYCIN HCL [Concomitant]
  9. CIPRO [Concomitant]

REACTIONS (10)
  - ABDOMINAL PAIN UPPER [None]
  - ANGINA PECTORIS [None]
  - BLOOD GLUCOSE INCREASED [None]
  - DECREASED APPETITE [None]
  - DIARRHOEA [None]
  - GASTROENTERITIS VIRAL [None]
  - INTERVERTEBRAL DISC PROTRUSION [None]
  - MOOD ALTERED [None]
  - STAPHYLOCOCCAL INFECTION [None]
  - WEIGHT DECREASED [None]
